FAERS Safety Report 19498444 (Version 2)
Quarter: 2022Q1

REPORT INFORMATION
  Report Type: Report from Study
  Country: BR (occurrence: BR)
  Receive Date: 20210706
  Receipt Date: 20220222
  Transmission Date: 20220423
  Serious: Yes (Other)
  Sender: FDA-Public Use
  Company Number: BR-NOVARTISPH-NVSC2019BR013408

PATIENT
  Age: 52 Year
  Sex: Female

DRUGS (13)
  1. GILENYA [Suspect]
     Active Substance: FINGOLIMOD HYDROCHLORIDE
     Indication: Multiple sclerosis
     Dosage: UNK
     Route: 065
     Dates: start: 20190917
  2. GILENYA [Suspect]
     Active Substance: FINGOLIMOD HYDROCHLORIDE
     Dosage: UNK
     Route: 065
     Dates: start: 201909
  3. GILENYA [Suspect]
     Active Substance: FINGOLIMOD HYDROCHLORIDE
     Dosage: UNK
     Route: 065
     Dates: start: 20190917
  4. GILENYA [Suspect]
     Active Substance: FINGOLIMOD HYDROCHLORIDE
     Dosage: UNK
     Route: 065
     Dates: start: 201909, end: 20220107
  5. AZITHROMYCIN DIHYDRATE [Suspect]
     Active Substance: AZITHROMYCIN DIHYDRATE
     Indication: Product used for unknown indication
     Route: 065
  6. FLUIMUCIL [Concomitant]
     Active Substance: ACETYLCYSTEINE
     Indication: Product used for unknown indication
     Route: 065
  7. ALLEGRA [Concomitant]
     Active Substance: FEXOFENADINE HYDROCHLORIDE
     Indication: Product used for unknown indication
     Route: 065
  8. BETAMETHASONE [Concomitant]
     Active Substance: BETAMETHASONE
     Indication: Product used for unknown indication
     Route: 065
  9. ATROVENT [Concomitant]
     Active Substance: IPRATROPIUM BROMIDE
     Indication: Product used for unknown indication
     Route: 065
  10. BEROTEC [Concomitant]
     Active Substance: FENOTEROL HYDROBROMIDE
     Indication: Product used for unknown indication
     Route: 065
  11. AMOXICILLIN [Concomitant]
     Active Substance: AMOXICILLIN
     Indication: Product used for unknown indication
     Route: 065
  12. GLIFAGE [Concomitant]
     Active Substance: METFORMIN HYDROCHLORIDE
     Indication: Diabetes mellitus
     Dosage: 500 UNK, QD
     Route: 065
  13. TRAZODONE HYDROCHLORIDE [Concomitant]
     Active Substance: TRAZODONE HYDROCHLORIDE
     Indication: Cold sweat
     Dosage: 100 UG
     Route: 065

REACTIONS (41)
  - Arthralgia [Unknown]
  - Gamma-glutamyltransferase abnormal [Unknown]
  - Insomnia [Unknown]
  - Nasal congestion [Not Recovered/Not Resolved]
  - Decreased appetite [Unknown]
  - Toothache [Unknown]
  - Skin discolouration [Unknown]
  - Swelling of eyelid [Unknown]
  - Oropharyngeal discomfort [Not Recovered/Not Resolved]
  - Facial pain [Not Recovered/Not Resolved]
  - Blood cholesterol increased [Unknown]
  - Hepatic steatosis [Unknown]
  - Feeling abnormal [Unknown]
  - Memory impairment [Not Recovered/Not Resolved]
  - Gait disturbance [Unknown]
  - Peripheral swelling [Unknown]
  - Fibromyalgia [Unknown]
  - Spinal pain [Unknown]
  - Poor quality sleep [Unknown]
  - Tendonitis [Unknown]
  - Bursitis [Unknown]
  - Arthritis [Unknown]
  - Alopecia [Unknown]
  - Eye pain [Unknown]
  - Exostosis [Unknown]
  - Morton^s neuralgia [Unknown]
  - Folliculitis [Unknown]
  - Osteoarthritis [Unknown]
  - Pain in extremity [Not Recovered/Not Resolved]
  - Influenza [Recovered/Resolved]
  - Sinusitis [Unknown]
  - Back pain [Unknown]
  - Productive cough [Not Recovered/Not Resolved]
  - Rhinitis [Not Recovered/Not Resolved]
  - Rhinorrhoea [Unknown]
  - Cough [Unknown]
  - White blood cell count decreased [Not Recovered/Not Resolved]
  - Musculoskeletal pain [Not Recovered/Not Resolved]
  - Anxiety [Not Recovered/Not Resolved]
  - Pain [Not Recovered/Not Resolved]
  - Headache [Recovered/Resolved]

NARRATIVE: CASE EVENT DATE: 20190917
